FAERS Safety Report 17206599 (Version 2)
Quarter: 2024Q4

REPORT INFORMATION
  Report Type: Spontaneous
  Country: US (occurrence: US)
  Receive Date: 20191227
  Receipt Date: 20241226
  Transmission Date: 20250115
  Serious: Yes (Other)
  Sender: ALKEM
  Company Number: None

PATIENT
  Age: 71 Year
  Sex: Male

DRUGS (17)
  1. AZATHIOPRINE [Suspect]
     Active Substance: AZATHIOPRINE
     Indication: Granulomatosis with polyangiitis
     Dosage: UNK
     Route: 065
  2. TACROLIMUS [Suspect]
     Active Substance: TACROLIMUS
     Indication: Immunosuppressant drug therapy
     Dosage: 4 MILLIGRAM, QD (EVERY 1 DAY)
     Route: 065
  3. TACROLIMUS [Suspect]
     Active Substance: TACROLIMUS
     Dosage: 3 MILLIGRAM, QD (EVERY 1 DAY)
     Route: 065
  4. TACROLIMUS [Suspect]
     Active Substance: TACROLIMUS
     Dosage: 2 MILLIGRAM, QD (EVERY 1 DAY)
     Route: 065
  5. TACROLIMUS [Suspect]
     Active Substance: TACROLIMUS
     Dosage: 1.5 MILLIGRAM, QD (EVERY 1 DAY)
     Route: 065
  6. MYCOPHENOLATE MOFETIL [Suspect]
     Active Substance: MYCOPHENOLATE MOFETIL
     Indication: Immunosuppressant drug therapy
     Dosage: 1000 MG, BID
     Route: 065
  7. MYCOPHENOLATE MOFETIL [Suspect]
     Active Substance: MYCOPHENOLATE MOFETIL
     Dosage: 2000 MILLIGRAM, QD (EVERY 1 DAY)
     Route: 065
  8. MYCOPHENOLATE MOFETIL [Suspect]
     Active Substance: MYCOPHENOLATE MOFETIL
     Dosage: UNK (DOSE REDUCED)
     Route: 065
  9. METHYLPREDNISOLONE [Suspect]
     Active Substance: METHYLPREDNISOLONE
     Indication: Immunosuppressant drug therapy
     Dosage: 500 MILLIGRAM
     Route: 065
  10. METHYLPREDNISOLONE [Suspect]
     Active Substance: METHYLPREDNISOLONE
     Dosage: UNK (DOSE REDUCED)
     Route: 065
  11. PREDNISONE [Suspect]
     Active Substance: PREDNISONE
     Indication: Immunosuppressant drug therapy
     Dosage: UNK
     Route: 065
  12. PREDNISONE [Suspect]
     Active Substance: PREDNISONE
     Dosage: UNK (DOSE REDUCED)
     Route: 065
  13. THYMOGLOBULIN [Suspect]
     Active Substance: LAPINE T-LYMPHOCYTE IMMUNE GLOBULIN
     Indication: Product used for unknown indication
     Dosage: UNK
     Route: 065
  14. VALGANCICLOVIR [Suspect]
     Active Substance: VALGANCICLOVIR
     Indication: Infection prophylaxis
     Dosage: 450 MG, QD (EVERY 1 DAY)
     Route: 065
  15. VALGANCICLOVIR [Suspect]
     Active Substance: VALGANCICLOVIR
     Dosage: 900 MG, QD (EVERY 1 DAY)
     Route: 065
  16. THYMOCYTE IMMUNE GLOBULIN NOS [Concomitant]
     Active Substance: THYMOCYTE IMMUNE GLOBULIN NOS
     Indication: Product used for unknown indication
     Dosage: 3 MILLIGRAM/KILOGRAM
     Route: 065
  17. SULFAMETHOXAZOLE\TRIMETHOPRIM [Concomitant]
     Active Substance: SULFAMETHOXAZOLE\TRIMETHOPRIM
     Indication: Infection prophylaxis
     Dosage: UNK
     Route: 065

REACTIONS (1)
  - Cytomegalovirus viraemia [Recovering/Resolving]
